FAERS Safety Report 21904837 (Version 1)
Quarter: 2023Q1

REPORT INFORMATION
  Report Type: Spontaneous
  Country: US (occurrence: None)
  Receive Date: 20230124
  Receipt Date: 20230124
  Transmission Date: 20230417
  Serious: Yes (Hospitalization)
  Sender: FDA-Public Use
  Company Number: None

PATIENT
  Age: 76 Year
  Sex: Male
  Weight: 39.92 kg

DRUGS (2)
  1. APIXABAN [Suspect]
     Active Substance: APIXABAN
     Indication: Deep vein thrombosis
     Dosage: FREQUENCY : TWICE A DAY;?
     Route: 048
     Dates: start: 20220321, end: 20220405
  2. APIXABAN [Suspect]
     Active Substance: APIXABAN
     Indication: Pulmonary embolism

REACTIONS (9)
  - Generalised tonic-clonic seizure [None]
  - Depressed level of consciousness [None]
  - Mouth haemorrhage [None]
  - Gaze palsy [None]
  - Facial paralysis [None]
  - Dyskinesia [None]
  - Jaw disorder [None]
  - Drug hypersensitivity [None]
  - Vertebrobasilar stroke [None]

NARRATIVE: CASE EVENT DATE: 20220414
